FAERS Safety Report 7412432-8 (Version None)
Quarter: 2011Q2

REPORT INFORMATION
  Report Type: 
  Country: None (occurrence: None)
  Receive Date: 20110413
  Receipt Date: 20110405
  Transmission Date: 20111010
  Serious: Yes (Other)
  Sender: FDA-Public Use
  Company Number: PHHY2009CA46148

PATIENT
  Sex: Female

DRUGS (16)
  1. MANERIX [Concomitant]
  2. SYNTHROID [Concomitant]
     Indication: THYROID DISORDER
     Dosage: 0.1 MG, QD
  3. EXJADE [Suspect]
     Dosage: 500 MG, QD
     Route: 048
     Dates: end: 20110301
  4. TEMAZEPAM [Concomitant]
     Indication: DEPRESSION
     Dosage: 50 MG, QD
  5. EXJADE [Suspect]
     Indication: MYELODYSPLASTIC SYNDROME
     Dosage: 2000 MG, QD
     Route: 048
     Dates: start: 20071001
  6. ACETAMINOPHEN [Concomitant]
     Dosage: UNK
  7. ONDASETRON [Concomitant]
     Dosage: 8 MG, TID
  8. LEVOTHYROXINE [Concomitant]
  9. APO-MOCLOBEMIDE [Concomitant]
     Dosage: 75 MG, QD
  10. AMITRIPTYLINE [Concomitant]
     Dosage: 50 MG, QD
  11. ELAVIL [Concomitant]
     Dosage: 50 MG, QD
  12. OXYCODONE AND ACETAMINOPHEN [Concomitant]
  13. EXJADE [Suspect]
     Indication: IRON OVERLOAD
     Dosage: 1000 MG, QD
     Route: 048
     Dates: start: 20080201, end: 20110315
  14. TEMAZEPAM [Concomitant]
     Dosage: 15 MG, QD
  15. DESFERRIOXAMINE [Concomitant]
  16. MAXERAN [Concomitant]
     Dosage: UNK

REACTIONS (12)
  - PHARYNGITIS [None]
  - THROAT TIGHTNESS [None]
  - THROAT IRRITATION [None]
  - SERUM FERRITIN INCREASED [None]
  - GASTRIC POLYPS [None]
  - DYSPHAGIA [None]
  - CONSTIPATION [None]
  - DRY MOUTH [None]
  - DIARRHOEA [None]
  - NAUSEA [None]
  - SWOLLEN TONGUE [None]
  - OROPHARYNGEAL PAIN [None]
